FAERS Safety Report 5519866-7 (Version None)
Quarter: 2007Q4

REPORT INFORMATION
  Report Type: 
  Country: None (occurrence: None)
  Receive Date: 20071116
  Receipt Date: 20071108
  Transmission Date: 20080405
  Serious: Yes (Other)
  Sender: FDA-Public Use
  Company Number: PHRM2007FR02568

PATIENT
  Age: 78 Year
  Sex: Male

DRUGS (1)
  1. LESCOL [Suspect]
     Route: 048

REACTIONS (7)
  - ACTINIC KERATOSIS [None]
  - ANAEMIA [None]
  - ECZEMA [None]
  - MYELOFIBROSIS [None]
  - OSTEOARTHRITIS [None]
  - RED BLOOD CELL MORPHOLOGY ABNORMAL [None]
  - TOXIC SKIN ERUPTION [None]
